FAERS Safety Report 8016954-0 (Version None)
Quarter: 2012Q1

REPORT INFORMATION
  Report Type: 
  Country: None (occurrence: None)
  Receive Date: 20120102
  Receipt Date: 20111227
  Transmission Date: 20120608
  Serious: Yes (Hospitalization, Disabling)
  Sender: FDA-Public Use
  Company Number: PHEH2011US010714

PATIENT
  Sex: Male
  Weight: 79.5 kg

DRUGS (12)
  1. LOVENOX [Concomitant]
     Indication: DEEP VEIN THROMBOSIS
     Dosage: 1 MG/KG, BID
     Route: 058
  2. MIRALAX [Concomitant]
     Indication: CONSTIPATION
     Dosage: 17 G, DAILY
     Route: 048
  3. DILAUDID [Concomitant]
     Route: 042
  4. DILAUDID [Concomitant]
     Dosage: 6 MG, Q4H
     Route: 048
  5. OMEPRAZOLE [Concomitant]
     Dosage: 20 MG, DAILY
     Route: 048
  6. EXJADE [Suspect]
     Indication: IRON OVERLOAD
     Dosage: 2500 MG, QD
     Route: 048
     Dates: end: 20110701
  7. MS CONTIN [Concomitant]
     Dosage: 60 MG, TID
     Route: 048
  8. HYDROXYUREA [Concomitant]
     Dosage: 500 MG, BID
  9. COUMADIN [Concomitant]
     Indication: ANTICOAGULANT THERAPY
     Dosage: 5 MG, DAILY
     Route: 048
  10. DILAUDID [Concomitant]
     Indication: PAIN
     Dosage: 2 MG, Q4H
     Route: 048
  11. DESFERAL [Suspect]
     Route: 058
  12. EFFEXOR XR [Concomitant]
     Dosage: 150 MG, DAILY

REACTIONS (7)
  - BACK PAIN [None]
  - PAIN [None]
  - ARTHRALGIA [None]
  - RETICULOCYTE COUNT INCREASED [None]
  - SICKLE CELL ANAEMIA WITH CRISIS [None]
  - ANAEMIA [None]
  - CONJUNCTIVAL PALLOR [None]
